FAERS Safety Report 11108323 (Version 1)
Quarter: 2015Q2

REPORT INFORMATION
  Report Type: Spontaneous
  Country: US (occurrence: US)
  Receive Date: 20150512
  Receipt Date: 20150512
  Transmission Date: 20150821
  Serious: Yes (Death, Hospitalization, Other)
  Sender: FDA-Public Use
  Company Number: US-009507513-1505USA003028

PATIENT
  Sex: Male
  Weight: 73.16 kg

DRUGS (1)
  1. JANUVIA [Suspect]
     Active Substance: SITAGLIPTIN PHOSPHATE
     Indication: TYPE 2 DIABETES MELLITUS
     Dosage: 100 MG, QD
     Route: 048
     Dates: start: 20071120, end: 20100530

REACTIONS (36)
  - Spinal operation [Unknown]
  - Reproductive tract disorder [Unknown]
  - Cardiomegaly [Unknown]
  - Bladder dilatation [Unknown]
  - Abdominal hernia [Unknown]
  - Gastrooesophageal reflux disease [Unknown]
  - Abdominal cavity drainage [Unknown]
  - Eye disorder [Unknown]
  - Urinary retention [Unknown]
  - Hepatic cirrhosis [Unknown]
  - Renal cyst [Unknown]
  - Poor quality sleep [Unknown]
  - Pancreatic carcinoma metastatic [Unknown]
  - Renal failure [Unknown]
  - Blood cholesterol increased [Unknown]
  - Vascular calcification [Unknown]
  - Cardiac failure congestive [Unknown]
  - Hepatitis [Unknown]
  - Atelectasis [Unknown]
  - Vena cava filter insertion [Unknown]
  - Metastases to liver [Unknown]
  - Oedema peripheral [Unknown]
  - Ascites [Unknown]
  - Pain [Unknown]
  - Peripheral swelling [Unknown]
  - Oedema [Unknown]
  - Angioplasty [Unknown]
  - Death [Fatal]
  - Intervertebral disc degeneration [Unknown]
  - Gastrointestinal wall thickening [Unknown]
  - Myocardial infarction [Unknown]
  - Hepatic neoplasm [Unknown]
  - Infectious colitis [Unknown]
  - Anaemia [Unknown]
  - Abdominal cavity drainage [Unknown]
  - Pulmonary fibrosis [Unknown]

NARRATIVE: CASE EVENT DATE: 20080109
